FAERS Safety Report 9646121 (Version 1)
Quarter: 2013Q4

REPORT INFORMATION
  Report Type: Spontaneous
  Country: US (occurrence: US)
  Receive Date: 20131025
  Receipt Date: 20131025
  Transmission Date: 20140711
  Serious: No
  Sender: FDA-Public Use
  Company Number: US-MYLANLABS-2013S1018645

PATIENT
  Age: 23 Year
  Sex: Female

DRUGS (1)
  1. ACYCLOVIR OINTMENT USP [Suspect]
     Indication: GENITAL HERPES
     Dosage: APPLY TO THE AFFECTED AREA EVERY 4-6 HOURS AS NEEDED.
     Route: 061
     Dates: start: 20130725, end: 201308

REACTIONS (2)
  - Drug ineffective [Recovered/Resolved]
  - Genital herpes [Recovered/Resolved]
